FAERS Safety Report 6477992-2 (Version None)
Quarter: 2009Q4

REPORT INFORMATION
  Report Type: 
  Country: None (occurrence: None)
  Receive Date: 20091207
  Receipt Date: 20091201
  Transmission Date: 20100525
  Serious: Yes (Hospitalization)
  Sender: FDA-Public Use
  Company Number: B0607945A

PATIENT
  Age: 3 Year
  Sex: Male
  Weight: 13.1 kg

DRUGS (4)
  1. ZIDOVUDINE [Suspect]
     Indication: HIV INFECTION
     Dosage: 100MG TWICE PER DAY
     Route: 048
     Dates: start: 20070730
  2. KALETRA [Suspect]
     Indication: HIV INFECTION
     Dosage: 160MG TWICE PER DAY
     Route: 048
     Dates: start: 20070730
  3. LAMIVUDINE [Suspect]
     Indication: HIV INFECTION
     Dosage: 60MG TWICE PER DAY
     Route: 048
     Dates: start: 20070730
  4. BACTRIM [Concomitant]

REACTIONS (4)
  - DEHYDRATION [None]
  - DIARRHOEA [None]
  - GASTROENTERITIS [None]
  - HYPOKALAEMIA [None]
